FAERS Safety Report 4578200-X (Version None)
Quarter: 2005Q1

REPORT INFORMATION
  Report Type: 
  Country: None (occurrence: None)
  Receive Date: 20050209
  Receipt Date: 20050120
  Transmission Date: 20050727
  Serious: Yes (Hospitalization, Other)
  Sender: FDA-Public Use
  Company Number: US_0501111264

PATIENT
  Age: 85 Year
  Sex: Female

DRUGS (2)
  1. EVISTA [Suspect]
  2. ANTIBIOTIC [Concomitant]

REACTIONS (2)
  - MOBILITY DECREASED [None]
  - OEDEMA PERIPHERAL [None]
